FAERS Safety Report 6097527-6 (Version None)
Quarter: 2009Q1

REPORT INFORMATION
  Report Type: 
  Country: None (occurrence: None)
  Receive Date: 20090227
  Receipt Date: 20080922
  Transmission Date: 20090719
  Serious: No
  Sender: FDA-Public Use
  Company Number: A0748583A

PATIENT
  Age: 32 Year
  Sex: Female

DRUGS (13)
  1. IMITREX [Suspect]
     Indication: MIGRAINE
     Dosage: 6MG AS REQUIRED
     Route: 058
     Dates: start: 20080801
  2. IMITREX TABLETS [Concomitant]
  3. NEURONTIN [Concomitant]
  4. LORA TAB [Concomitant]
  5. CYMBALTA [Concomitant]
  6. MOBIC [Concomitant]
  7. ZONEGRAN [Concomitant]
  8. XANAX XR [Concomitant]
  9. PROTONIX [Concomitant]
  10. KETOROLAC [Concomitant]
  11. ZANAFLEX [Concomitant]
  12. PHENERGAN [Concomitant]
  13. IMITREX [Concomitant]
     Dosage: 4MG AS REQUIRED
     Route: 058

REACTIONS (2)
  - NAUSEA [None]
  - PRODUCT QUALITY ISSUE [None]
